FAERS Safety Report 8546377-7 (Version None)
Quarter: 2012Q3

REPORT INFORMATION
  Report Type: 
  Country: None (occurrence: None)
  Receive Date: 20120727
  Receipt Date: 20111221
  Transmission Date: 20120928
  Serious: No
  Sender: FDA-Public Use
  Company Number: US-ASTRAZENECA-2011SE77737

PATIENT
  Age: 48 Year
  Sex: Female

DRUGS (5)
  1. GENERIC OF PROZAC [Concomitant]
  2. SEROQUEL XR [Suspect]
     Indication: ANXIETY
     Route: 048
  3. SEROQUEL XR [Suspect]
     Indication: DEPRESSION
     Route: 048
  4. SEROQUEL XR [Suspect]
     Dosage: HALF TABLETS
     Route: 048
  5. SEROQUEL XR [Suspect]
     Dosage: HALF TABLETS
     Route: 048

REACTIONS (2)
  - ANXIETY [None]
  - WRONG TECHNIQUE IN DRUG USAGE PROCESS [None]
